FAERS Safety Report 7220851-8 (Version None)
Quarter: 2011Q1

REPORT INFORMATION
  Report Type: 
  Country: None (occurrence: None)
  Receive Date: 20110112
  Receipt Date: 20110107
  Transmission Date: 20110831
  Serious: No
  Sender: FDA-Public Use
  Company Number: US-BAYER-2011-003085

PATIENT
  Sex: Male

DRUGS (7)
  1. AMLODIPINE [Concomitant]
     Dosage: UNK
     Dates: start: 20101027
  2. OMEPRAZOLE [Concomitant]
     Dosage: UNK
     Dates: start: 20101101
  3. METOPROLOL TARTRATE [Concomitant]
     Dosage: UNK
     Dates: start: 20101021
  4. LEVOTHYROXINE SODIUM [Concomitant]
     Dosage: UNK
     Dates: start: 20101108
  5. RAPAMUNE [Concomitant]
     Dosage: UNK
     Dates: start: 20101117
  6. NEXAVAR [Suspect]
     Indication: LUNG NEOPLASM MALIGNANT
     Dosage: 200 MG, BID
     Route: 048
     Dates: start: 20101015
  7. VENLAFAXINE [Concomitant]
     Dosage: UNK
     Dates: start: 20100719

REACTIONS (3)
  - FATIGUE [None]
  - DIARRHOEA [None]
  - ABDOMINAL PAIN [None]
